FAERS Safety Report 5756633-3 (Version None)
Quarter: 2008Q2

REPORT INFORMATION
  Report Type: 
  Country: None (occurrence: None)
  Receive Date: 20080603
  Receipt Date: 20080530
  Transmission Date: 20081010
  Serious: Yes (Hospitalization)
  Sender: FDA-Public Use
  Company Number: GB-BRISTOL-MYERS SQUIBB COMPANY-14205686

PATIENT
  Age: 50 Year
  Sex: Male

DRUGS (6)
  1. ARIPIPRAZOLE [Suspect]
     Indication: SCHIZOPHRENIA, PARANOID TYPE
     Dosage: 15MG/DAY AFTER 3 MONTHS.
  2. METFORMIN HCL [Suspect]
     Indication: DIABETES MELLITUS
     Dosage: PREVIOUSLY WAS 500 MG.
  3. GLICLAZIDE [Suspect]
     Indication: DIABETES MELLITUS
  4. RISPERIDONE [Suspect]
  5. AMLODIPINE [Concomitant]
  6. SIVASTIN [Concomitant]

REACTIONS (6)
  - HYPOGLYCAEMIA [None]
  - MENTAL DISORDER [None]
  - OVERWEIGHT [None]
  - TREATMENT NONCOMPLIANCE [None]
  - URINARY INCONTINENCE [None]
  - WEIGHT DECREASED [None]
